FAERS Safety Report 8294063-3 (Version None)
Quarter: 2012Q2

REPORT INFORMATION
  Report Type: 
  Country: None (occurrence: None)
  Receive Date: 20120418
  Receipt Date: 20120409
  Transmission Date: 20120825
  Serious: Yes (Hospitalization)
  Sender: FDA-Public Use
  Company Number: US-US-EMD SERONO, INC.-7037069

PATIENT
  Sex: Female
  Weight: 72 kg

DRUGS (1)
  1. REBIF [Suspect]
     Indication: MULTIPLE SCLEROSIS
     Route: 058
     Dates: start: 20070416

REACTIONS (5)
  - DYSSTASIA [None]
  - INJECTION SITE PAIN [None]
  - INTERVERTEBRAL DISC CALCIFICATION [None]
  - GAIT DISTURBANCE [None]
  - CYST [None]
